FAERS Safety Report 5929047-0 (Version None)
Quarter: 2008Q4

REPORT INFORMATION
  Report Type: 
  Country: None (occurrence: None)
  Receive Date: 20081024
  Receipt Date: 20081021
  Transmission Date: 20090506
  Serious: Yes (Death)
  Sender: FDA-Public Use
  Company Number: JP-JNJFOC-20081000685

PATIENT
  Sex: Female

DRUGS (4)
  1. RISPERDAL [Suspect]
     Indication: SCHIZOPHRENIA
     Route: 048
  2. SULPIRIDE [Suspect]
     Indication: SCHIZOPHRENIA
     Dosage: 2MG X 2 TAB
     Route: 048
  3. RHYTHMY [Suspect]
     Indication: INSOMNIA
     Route: 048
  4. BIPERIDEN HYDROCHLORIDE TAB [Suspect]
     Indication: PARKINSONISM
     Route: 048

REACTIONS (1)
  - CARDIAC FAILURE ACUTE [None]
